FAERS Safety Report 24711300 (Version 1)
Quarter: 2024Q4

REPORT INFORMATION
  Report Type: Spontaneous
  Country: US (occurrence: None)
  Receive Date: 20241207
  Receipt Date: 20241207
  Transmission Date: 20250115
  Serious: Yes (Death)
  Sender: Public
  Company Number: None

PATIENT
  Age: 37 Year
  Sex: Female
  Weight: 56.2 kg

DRUGS (8)
  1. FLUOROURACIL [Suspect]
     Active Substance: FLUOROURACIL
     Dates: end: 20241113
  2. LEUCOVORIN CALCIUM [Suspect]
     Active Substance: LEUCOVORIN CALCIUM
     Dates: end: 20241111
  3. NIVOLUMAB [Suspect]
     Active Substance: NIVOLUMAB
     Dates: end: 20241111
  4. ELOXATIN [Suspect]
     Active Substance: OXALIPLATIN
     Dates: end: 20241111
  5. CLOBAZAM [Concomitant]
     Active Substance: CLOBAZAM
  6. GABAPENTIN [Concomitant]
     Active Substance: GABAPENTIN
  7. ACETAMINOPHEN\HYDROCODONE [Concomitant]
     Active Substance: ACETAMINOPHEN\HYDROCODONE
  8. OXYCODONE [Concomitant]
     Active Substance: OXYCODONE

REACTIONS (14)
  - Weight decreased [None]
  - Fatigue [None]
  - Decreased appetite [None]
  - Nausea [None]
  - Vomiting [None]
  - Cough [None]
  - Oropharyngeal pain [None]
  - Oral candidiasis [None]
  - Rash pustular [None]
  - Chromaturia [None]
  - Asthenia [None]
  - General physical health deterioration [None]
  - Oedema peripheral [None]
  - Electrolyte imbalance [None]

NARRATIVE: CASE EVENT DATE: 20241130
